FAERS Safety Report 5643941-X (Version None)
Quarter: 2008Q1

REPORT INFORMATION
  Report Type: 
  Country: None (occurrence: None)
  Receive Date: 20080226
  Receipt Date: 20080217
  Transmission Date: 20080703
  Serious: Yes (Other)
  Sender: FDA-Public Use
  Company Number: CHPA2008US03070

PATIENT
  Age: 22 Year
  Sex: Female

DRUGS (1)
  1. NODOZ (NCH)(CAFFEINE) CAPLET [Suspect]
     Indication: INSOMNIA
     Dosage: 400 MG, ONCE/SINGLE, ORAL
     Route: 048
     Dates: start: 20080216, end: 20080216

REACTIONS (7)
  - ANXIETY [None]
  - CHEST PAIN [None]
  - DYSPNOEA [None]
  - INCORRECT DOSE ADMINISTERED [None]
  - OVERDOSE [None]
  - PALPITATIONS [None]
  - PANIC ATTACK [None]
